FAERS Safety Report 25921124 (Version 2)
Quarter: 2025Q4

REPORT INFORMATION
  Report Type: Spontaneous
  Country: EU (occurrence: EU)
  Receive Date: 20251014
  Receipt Date: 20251022
  Transmission Date: 20260118
  Serious: Yes (Life-Threatening, Hospitalization, Other)
  Sender: ELI LILLY AND COMPANY
  Company Number: EU-Merck Healthcare KGaA-2025050843

PATIENT
  Age: 67 Year
  Sex: Male
  Weight: 94 kg

DRUGS (4)
  1. ERBITUX [Suspect]
     Active Substance: CETUXIMAB
     Indication: Squamous cell carcinoma of head and neck
     Dosage: 800 MG, UNKNOWN (1 EVERY 1 TOTAL)
     Route: 042
     Dates: start: 20251002, end: 20251002
  2. DEXCHLORPHENIRAMINE [Concomitant]
     Active Substance: DEXCHLORPHENIRAMINE
     Indication: Premedication
     Dosage: 5 MG
     Dates: start: 20251002
  3. METHYLPREDNISOLONE [Concomitant]
     Active Substance: METHYLPREDNISOLONE
     Indication: Premedication
     Dosage: UNK
     Dates: start: 20251002
  4. ONDANSETRON [Concomitant]
     Active Substance: ONDANSETRON
     Indication: Premedication

REACTIONS (1)
  - Anaphylactic reaction [Recovered/Resolved]

NARRATIVE: CASE EVENT DATE: 20251002
